FAERS Safety Report 5686368-7 (Version None)
Quarter: 2008Q1

REPORT INFORMATION
  Report Type: 
  Country: None (occurrence: None)
  Receive Date: 20080328
  Receipt Date: 20070802
  Transmission Date: 20080703
  Serious: No
  Sender: FDA-Public Use
  Company Number: US-BAYER-US-2007-029329

PATIENT
  Sex: Female

DRUGS (1)
  1. MIRENA [Suspect]
     Route: 015

REACTIONS (4)
  - ANXIETY [None]
  - ARTHROPATHY [None]
  - CLAUSTROPHOBIA [None]
  - FEELING HOT [None]
